FAERS Safety Report 5407378-0 (Version None)
Quarter: 2007Q3

REPORT INFORMATION
  Report Type: 
  Country: None (occurrence: None)
  Receive Date: 20070807
  Receipt Date: 20070730
  Transmission Date: 20080115
  Serious: Yes (Death, Other)
  Sender: FDA-Public Use
  Company Number: US-ELI_LILLY_AND_COMPANY-US200704004841

PATIENT
  Age: 44 Year
  Sex: Female
  Weight: 64.399 kg

DRUGS (15)
  1. XIGRIS [Suspect]
     Indication: SEPTIC SHOCK
     Dosage: UNK, OTHER
     Route: 042
     Dates: start: 20070420, end: 20070421
  2. LOVENOX [Concomitant]
     Indication: PROPHYLAXIS
     Dosage: 40 MG, DAILY (1/D)
     Dates: start: 20070401
  3. LEVOPHED [Concomitant]
     Dosage: UNK, OTHER
     Route: 042
     Dates: start: 20070401
  4. VASOPRESSIN [Concomitant]
     Dosage: UNK, OTHER
     Route: 042
     Dates: start: 20070401
  5. COMBIVENT [Concomitant]
     Dosage: UNK, OTHER
     Dates: start: 20070401
  6. ROCEPHIN [Concomitant]
     Dosage: 1 G, DAILY (1/D)
     Dates: start: 20070401
  7. PEPCID [Concomitant]
     Dosage: 20 UNK,
     Dates: start: 20070401
  8. INSULIN [Concomitant]
     Dosage: UNK, OTHER
     Route: 042
     Dates: start: 20070401
  9. HYDROCORTISONE [Concomitant]
     Dosage: 50 UNK, EVERY 6 HRS
     Dates: start: 20070401
  10. MIDAZOLAM [Concomitant]
     Dosage: UNK, UNK
     Route: 042
     Dates: start: 20070401
  11. AVELOX [Concomitant]
     Dosage: 400 MG, DAILY (1/D)
     Dates: start: 20070401
  12. FENTANYL [Concomitant]
     Dosage: UNK, OTHER
     Route: 042
     Dates: start: 20070401
  13. ALBUTEROL [Concomitant]
     Dates: start: 20070401
  14. BACTRIM [Concomitant]
     Dates: start: 20070401
  15. PREDNISONE TAB [Concomitant]
     Route: 055
     Dates: start: 20070401

REACTIONS (2)
  - DEEP VEIN THROMBOSIS [None]
  - MULTI-ORGAN FAILURE [None]
